FAERS Safety Report 9597046 (Version 2)
Quarter: 2013Q4

REPORT INFORMATION
  Report Type: Report from Study
  Country: US (occurrence: US)
  Receive Date: 20131004
  Receipt Date: 20131101
  Transmission Date: 20140711
  Serious: Yes (Other)
  Sender: FDA-Public Use
  Company Number: US-TAKEDA-2013TUS001141

PATIENT
  Sex: 0

DRUGS (14)
  1. ACTOS [Suspect]
     Indication: DIABETES MELLITUS
  2. HUMIRA [Suspect]
     Indication: PSORIASIS
     Dosage: FIRST TWO INJECTIONS WERE SYRINGE (40 MG,L IN 2 WK)
     Dates: start: 201102
  3. HUMIRA [Suspect]
     Indication: PSORIASIS
     Dosage: 40 MG,L IN 2 WK
     Dates: end: 201203
  4. HUMIRA [Suspect]
     Dosage: 40 MG,L IN 2 WK
     Dates: start: 20130815
  5. STELARA [Suspect]
  6. MULTIVITAMIN                       /00097801/ [Concomitant]
     Dosage: UNK,QD
  7. PROAIR HFA [Concomitant]
     Route: 050
  8. TYLENOL                            /00020001/ [Concomitant]
     Dosage: UNK,AS REQUIRED
  9. METHOTREXATE [Concomitant]
     Indication: PSORIASIS
     Dosage: UNK
  10. METHOTREXATE [Concomitant]
     Dosage: 25 MG, 1/WEEK
     Dates: start: 2012
  11. FOLIC ACID [Concomitant]
     Indication: PSORIASIS
     Dosage: 1 MG, QD
     Dates: start: 2012
  12. SINGULAIR [Concomitant]
     Dosage: UNK
     Dates: end: 2011
  13. DRUG USED IN DIABETES [Concomitant]
     Indication: DIABETES MELLITUS
  14. JENTADUETO [Concomitant]
     Indication: DIABETES MELLITUS
     Dosage: 2.5MG/L000MG (2 IN 1 DAY)

REACTIONS (10)
  - Sinus operation [Unknown]
  - Hot flush [Unknown]
  - Vitamin D decreased [Unknown]
  - Neuropathy peripheral [Unknown]
  - Heart rate increased [Unknown]
  - Diabetes mellitus inadequate control [Unknown]
  - Nausea [Unknown]
  - Psoriasis [Unknown]
  - Drug effect decreased [Unknown]
  - Drug ineffective [Unknown]
